FAERS Safety Report 11952762 (Version 2)
Quarter: 2016Q1

REPORT INFORMATION
  Report Type: Report from Study
  Country: US (occurrence: US)
  Receive Date: 20160126
  Receipt Date: 20160126
  Transmission Date: 20160526
  Serious: No
  Sender: FDA-Public Use
  Company Number: US-ABBVIE-15K-163-1358151-00

PATIENT
  Age: 62 Year
  Sex: Female

DRUGS (1)
  1. HUMIRA [Suspect]
     Active Substance: ADALIMUMAB
     Indication: COLITIS ULCERATIVE
     Route: 065
     Dates: start: 20141107, end: 20150228

REACTIONS (13)
  - Joint swelling [Not Recovered/Not Resolved]
  - Weight increased [Unknown]
  - Fear of injection [Unknown]
  - Inappropriate schedule of drug administration [Recovered/Resolved]
  - Feeling cold [Recovered/Resolved]
  - Peripheral swelling [Recovered/Resolved]
  - Rash generalised [Recovered/Resolved]
  - Peripheral swelling [Not Recovered/Not Resolved]
  - Rash [Recovered/Resolved]
  - Pain in extremity [Unknown]
  - Arthralgia [Unknown]
  - Nasal congestion [Unknown]
  - Arthralgia [Unknown]

NARRATIVE: CASE EVENT DATE: 20141107
